FAERS Safety Report 23973332 (Version 1)
Quarter: 2024Q2

REPORT INFORMATION
  Report Type: Report from Study
  Country: DE (occurrence: DE)
  Receive Date: 20240613
  Receipt Date: 20240613
  Transmission Date: 20240716
  Serious: Yes (Hospitalization)
  Sender: FDA-Public Use
  Company Number: DE-ROCHE-2782113

PATIENT
  Age: 60 Year
  Sex: Male
  Weight: 87 kg

DRUGS (21)
  1. PEMETREXED [Suspect]
     Active Substance: PEMETREXED
     Indication: Non-small cell lung cancer
     Dosage: 1020 MILLIGRAM, Q3W, DOSE LAST STUDY DRUG ADMIN PRIOR AE/SAE 1020 MGON 25-FEB-2021
     Route: 042
     Dates: start: 20210225
  2. CARBOPLATIN [Suspect]
     Active Substance: CARBOPLATIN
     Indication: Non-small cell lung cancer
     Dosage: 390 MILLIGRAM, Q3W, ON 25-FEB-2021 RECEIVED MOST RECENT DOSE PRIOR TO AE/SAE DOSE LAST STUDY
     Route: 042
     Dates: start: 20210225
  3. NALOXONE HYDROCHLORIDE\TILIDINE HYDROCHLORIDE [Concomitant]
     Active Substance: NALOXONE HYDROCHLORIDE\TILIDINE HYDROCHLORIDE
     Indication: Pain
     Dosage: 216 MILLIGRAM, BID
     Route: 065
     Dates: start: 20210408, end: 20210408
  4. IBUPROFEN [Concomitant]
     Active Substance: IBUPROFEN
     Indication: Pain
     Dosage: 600 MILLIGRAM, QD
     Route: 065
     Dates: start: 20210218, end: 20210218
  5. Unacid [Concomitant]
     Indication: Prophylaxis
     Dosage: 375 MILLIGRAM, BID
     Route: 065
     Dates: start: 20210308, end: 20210312
  6. ZOPICLONE [Concomitant]
     Active Substance: ZOPICLONE
     Indication: Sleep disorder
     Dosage: 7.5 MILLIGRAM, QD
     Route: 065
     Dates: start: 20210218, end: 20210225
  7. SIMVASTATIN [Concomitant]
     Active Substance: SIMVASTATIN
     Indication: Hyperlipidaemia
     Dosage: 40 MILLIGRAM, QD
     Route: 065
     Dates: start: 20210713
  8. SIMVASTATIN [Concomitant]
     Active Substance: SIMVASTATIN
     Indication: Hypertension
  9. HYDROMORPHONE [Concomitant]
     Active Substance: HYDROMORPHONE
     Indication: Pain
     Dosage: 4 MILLIGRAM, BID
     Route: 065
     Dates: start: 20210224, end: 20210625
  10. FOLIC ACID [Concomitant]
     Active Substance: FOLIC ACID
     Indication: Prophylaxis
     Dosage: 0.4 MILLIGRAM, QD
     Route: 065
     Dates: start: 20210218, end: 20210713
  11. DIMENHYDRINATE [Concomitant]
     Active Substance: DIMENHYDRINATE
     Indication: Nausea
     Dosage: 50 MILLIGRAM, QD
     Route: 065
     Dates: start: 20210302, end: 20210302
  12. PEMBROLIZUMAB [Concomitant]
     Active Substance: PEMBROLIZUMAB
     Indication: Non-small cell lung cancer
     Dosage: 200 MILLIGRAM, Q3W, ON 25/FEB/2021 RECEIVED MOST RECENT DOSE BLINDED PEMBROLIZUMAB PRIOR
     Route: 065
     Dates: start: 20210225
  13. ZOFRAN [Concomitant]
     Active Substance: ONDANSETRON HYDROCHLORIDE
     Indication: Nausea
     Dosage: 4 MILLIGRAM
     Route: 065
     Dates: start: 20210301, end: 20210713
  14. Tavor [Concomitant]
     Indication: Sleep disorder
     Dosage: 1 MILLIGRAM, QD
     Route: 065
     Dates: start: 20210224, end: 20210225
  15. Jonosteril [Concomitant]
     Indication: Dysacusis
     Dosage: UNK
     Route: 065
     Dates: start: 20210301, end: 20210301
  16. MORPHINE [Concomitant]
     Active Substance: MORPHINE
     Indication: Pain
     Dosage: 5 MILLIGRAM, QD
     Route: 065
     Dates: start: 20210306, end: 20210307
  17. METAMIZOLE [Concomitant]
     Active Substance: METAMIZOLE
     Indication: Pain
     Dosage: 90 GTT DROPS, 0.25 DAY
     Route: 065
     Dates: start: 20210713
  18. PANTOPRAZOLE [Concomitant]
     Active Substance: PANTOPRAZOLE
     Indication: Gastrointestinal disorder prophylaxis
     Dosage: 80 MILLIGRAM, QD
     Route: 065
     Dates: start: 20210713
  19. DEXAMETHASONE [Concomitant]
     Active Substance: DEXAMETHASONE
     Indication: Lung neoplasm malignant
     Dosage: 4 MILLIGRAM
     Route: 065
     Dates: start: 20210214, end: 20210713
  20. ASPIRIN [Concomitant]
     Active Substance: ASPIRIN
     Indication: Peripheral arterial occlusive disease
     Dosage: 100 MILLIGRAM, QD
     Route: 065
     Dates: start: 20210713
  21. PIRITRAMIDE [Concomitant]
     Active Substance: PIRITRAMIDE
     Indication: Pain
     Dosage: 7.5 MILLIGRAM
     Route: 065
     Dates: start: 20210218, end: 20210225

REACTIONS (1)
  - General physical health deterioration [Recovered/Resolved]

NARRATIVE: CASE EVENT DATE: 20210301
